FAERS Safety Report 23093523 (Version 1)
Quarter: 2023Q4

REPORT INFORMATION
  Report Type: Spontaneous
  Country: US (occurrence: US)
  Receive Date: 20231023
  Receipt Date: 20231023
  Transmission Date: 20240110
  Serious: No
  Sender: FDA-Public Use
  Company Number: US-Teikoku Pharma USA-TPU2023-00504

PATIENT
  Age: 77 Year
  Sex: Female

DRUGS (1)
  1. LIDOCAINE PATCH [Suspect]
     Active Substance: LIDOCAINE
     Indication: Osteoarthritis
     Route: 061

REACTIONS (5)
  - Alopecia [Unknown]
  - Deafness [Unknown]
  - Visual impairment [Unknown]
  - General physical health deterioration [Unknown]
  - Emergency care [Unknown]
